FAERS Safety Report 4564993-4 (Version None)
Quarter: 2005Q1

REPORT INFORMATION
  Report Type: 
  Country: None (occurrence: None)
  Receive Date: 20050126
  Receipt Date: 20050119
  Transmission Date: 20050727
  Serious: Yes (Hospitalization)
  Sender: FDA-Public Use
  Company Number: 2004099088

PATIENT
  Age: 46 Year
  Sex: Male
  Weight: 82 kg

DRUGS (5)
  1. TAHOR                   (ATORVASTATIN) [Suspect]
     Indication: ILL-DEFINED DISORDER
     Dosage: 40 MG ( 1 IN 1 D ), ORAL
     Route: 048
     Dates: end: 20040817
  2. ESOMEPRAZOLE                    (ESOMEPRAZOLE) [Suspect]
     Indication: ILL-DEFINED DISORDER
     Dosage: 40 MG ( 1 IN 1 D), ORAL
     Route: 048
     Dates: end: 20040817
  3. ZOLPIDEM TARTRATE [Suspect]
     Indication: ILL-DEFINED DISORDER
     Dosage: 10 MG (10 MG, 1 IN 1 D), ORAL
     Route: 048
     Dates: end: 20040817
  4. AMLODIPINE BESILATE               (AMLODIPINE BESILATE0 [Concomitant]
  5. ACETYLSALICYLATE LYSINE           (ACETYSALICYLATE LYSINE0 [Concomitant]

REACTIONS (5)
  - ABDOMINAL PAIN [None]
  - CYTOLYTIC HEPATITIS [None]
  - HEPATITIS E [None]
  - SERUM FERRITIN INCREASED [None]
  - VOMITING [None]
